FAERS Safety Report 8068248-5 (Version None)
Quarter: 2012Q1

REPORT INFORMATION
  Report Type: 
  Country: None (occurrence: None)
  Receive Date: 20120124
  Receipt Date: 20111006
  Transmission Date: 20120608
  Serious: No
  Sender: FDA-Public Use
  Company Number: US-AMGEN-USASP2011051685

PATIENT
  Age: 61 Year
  Sex: Female

DRUGS (6)
  1. PROLIA [Suspect]
     Indication: PRODUCT USED FOR UNKNOWN INDICATION
     Dosage: 60 MG, Q6MO
     Dates: start: 20110401, end: 20110101
  2. PLAQUENIL [Concomitant]
  3. RELAFEN [Concomitant]
  4. METHOTREXATE [Concomitant]
  5. SYNTHROID [Concomitant]
  6. BETAPROFEN [Concomitant]

REACTIONS (7)
  - ABDOMINAL PAIN [None]
  - VISION BLURRED [None]
  - DIZZINESS [None]
  - DECREASED APPETITE [None]
  - NAUSEA [None]
  - MALAISE [None]
  - HEADACHE [None]
